FAERS Safety Report 5626826-4 (Version None)
Quarter: 2008Q1

REPORT INFORMATION
  Report Type: 
  Country: None (occurrence: None)
  Receive Date: 20080212
  Receipt Date: 20080131
  Transmission Date: 20080703
  Serious: Yes (Disabling)
  Sender: FDA-Public Use
  Company Number: GXKR2008US01313

PATIENT
  Sex: Male

DRUGS (4)
  1. PAROXETINE HCL [Suspect]
     Indication: MAJOR DEPRESSION
     Dosage: 40 MG, QD
     Dates: end: 20041201
  2. SERTRALINE [Suspect]
     Indication: MAJOR DEPRESSION
     Dosage: 100 MG, QD
     Dates: end: 20041201
  3. VENLAFAXIINE HCL [Suspect]
     Indication: MAJOR DEPRESSION
     Dosage: 150 MG, QD
     Dates: end: 20041201
  4. MILNACIPRAN (MILNACIPRAN) [Suspect]
     Indication: MAJOR DEPRESSION
     Dosage: 100 MG, QD
     Dates: end: 20041201

REACTIONS (7)
  - ANORGASMIA [None]
  - EJACULATION DISORDER [None]
  - ERECTILE DYSFUNCTION [None]
  - HYPOAESTHESIA OF GENITAL MALE [None]
  - LOSS OF LIBIDO [None]
  - ORGASMIC SENSATION DECREASED [None]
  - SEXUAL DYSFUNCTION [None]
